FAERS Safety Report 18536912 (Version 1)
Quarter: 2020Q4

REPORT INFORMATION
  Report Type: Spontaneous
  Country: US (occurrence: US)
  Receive Date: 20201123
  Receipt Date: 20201123
  Transmission Date: 20210114
  Serious: No
  Sender: FDA-Public Use
  Company Number: US-PERRIGO-19US014313

PATIENT
  Age: 77 Year
  Sex: Female
  Weight: 46.26 kg

DRUGS (5)
  1. POLYETHYLENE GLYCOL 3350. [Suspect]
     Active Substance: POLYETHYLENE GLYCOL 3350
     Indication: BOWEL PREPARATION
     Dosage: 8.3 OUNCES, SINGLE
     Route: 048
     Dates: start: 20190827, end: 20190827
  2. DILTIAZEM. [Concomitant]
     Active Substance: DILTIAZEM
     Dosage: 180 MG AT 0500; 30 MG AT 2000
     Route: 065
     Dates: start: 20191112, end: 20191112
  3. CALCITONIN SALMON. [Concomitant]
     Active Substance: CALCITONIN SALMON
     Indication: OSTEOPOROSIS
     Dosage: UNK, UNK
     Route: 045
  4. DILTIAZEM. [Concomitant]
     Active Substance: DILTIAZEM
     Indication: TACHYCARDIA
     Dosage: 180 MG, QD
     Route: 065
     Dates: start: 201905
  5. POLYETHYLENE GLYCOL 3350. [Suspect]
     Active Substance: POLYETHYLENE GLYCOL 3350
     Dosage: 8.3 OUNCES, SINGLE
     Route: 048
     Dates: start: 20191112, end: 20191112

REACTIONS (4)
  - Overdose [Recovered/Resolved]
  - Blood pressure increased [Recovered/Resolved]
  - Off label use [Recovered/Resolved]
  - Tachycardia [Recovered/Resolved]

NARRATIVE: CASE EVENT DATE: 20190827
